FAERS Safety Report 6262091-5 (Version None)
Quarter: 2009Q3

REPORT INFORMATION
  Report Type: 
  Country: None (occurrence: None)
  Receive Date: 20090709
  Receipt Date: 20090707
  Transmission Date: 20100115
  Serious: Yes (Hospitalization, Other)
  Sender: FDA-Public Use
  Company Number: US-JNJFOC-20090606440

PATIENT
  Age: 21 Year
  Sex: Female

DRUGS (2)
  1. LEVAQUIN [Suspect]
     Indication: MASTOIDITIS
     Route: 065
  2. BACTRIM [Concomitant]
     Indication: MASTOIDITIS
     Route: 065

REACTIONS (5)
  - ABASIA [None]
  - ARTHRALGIA [None]
  - ASTHENIA [None]
  - DYSAESTHESIA [None]
  - PARAESTHESIA [None]
